FAERS Safety Report 6822245-3 (Version None)
Quarter: 2010Q3

REPORT INFORMATION
  Report Type: 
  Country: None (occurrence: None)
  Receive Date: 20100708
  Receipt Date: 20100630
  Transmission Date: 20110219
  Serious: Yes (Other)
  Sender: FDA-Public Use
  Company Number: US-SANOFI-AVENTIS-2010SA038188

PATIENT
  Sex: Female

DRUGS (1)
  1. AMBIEN [Suspect]
     Route: 048

REACTIONS (5)
  - FALL [None]
  - HEAD INJURY [None]
  - HYPOTHERMIA [None]
  - LOSS OF CONSCIOUSNESS [None]
  - SOMNAMBULISM [None]
